FAERS Safety Report 12689399 (Version 1)
Quarter: 2016Q3

REPORT INFORMATION
  Report Type: Spontaneous
  Country: US (occurrence: US)
  Receive Date: 20160826
  Receipt Date: 20160826
  Transmission Date: 20161109
  Serious: No
  Sender: FDA-Public Use
  Company Number: US-BAYER-2016-159685

PATIENT
  Age: 76 Year
  Sex: Female
  Weight: 86.2 kg

DRUGS (1)
  1. MIRALAX [Suspect]
     Active Substance: POLYETHYLENE GLYCOL 3350
     Indication: DIVERTICULITIS
     Dosage: 2 DF, QD
     Route: 048
     Dates: start: 201605

REACTIONS (3)
  - Product use issue [None]
  - Intentional product use issue [None]
  - Product use issue [None]

NARRATIVE: CASE EVENT DATE: 201605
